FAERS Safety Report 6745892-6 (Version None)
Quarter: 2010Q2

REPORT INFORMATION
  Report Type: 
  Country: None (occurrence: None)
  Receive Date: 20100528
  Receipt Date: 20100524
  Transmission Date: 20101027
  Serious: Yes (Other)
  Sender: FDA-Public Use
  Company Number: GB-JNJFOC-20100509093

PATIENT
  Age: 79 Year
  Sex: Female

DRUGS (16)
  1. IBUPROFEN [Suspect]
     Indication: PAIN
     Route: 065
  2. ATORVASTATIN [Concomitant]
     Indication: HYPERCHOLESTEROLAEMIA
     Route: 048
  3. CODEINE SULFATE [Concomitant]
     Indication: PAIN
     Route: 048
  4. DIGOXIN [Concomitant]
     Indication: ATRIAL FIBRILLATION
     Route: 048
  5. CITALOPRAM [Concomitant]
     Indication: DEPRESSED MOOD
     Route: 048
  6. GLYCERYL TRINITRATE [Concomitant]
     Indication: ANGINA PECTORIS
     Route: 060
  7. HALOPERIDOL [Concomitant]
     Indication: HALLUCINATION
     Route: 048
  8. MAGNESIUM HYDROXIDE TAB [Concomitant]
     Indication: CONSTIPATION
     Route: 048
  9. NORMAL SALINE [Concomitant]
     Indication: DRUG USE FOR UNKNOWN INDICATION
     Route: 055
  10. OXYCODONE HCL [Concomitant]
     Indication: PAIN
     Dosage: AS NEEDED
     Route: 048
  11. SENNA [Concomitant]
     Indication: CONSTIPATION
     Route: 048
  12. TRIMETHOPRIM [Concomitant]
     Indication: URINARY TRACT INFECTION
     Route: 048
  13. VERAPAMIL [Concomitant]
     Indication: ANGINA PECTORIS
     Route: 048
  14. WARFARIN SODIUM [Concomitant]
     Indication: ATRIAL FIBRILLATION
     Route: 048
  15. ZOPICLONE [Concomitant]
     Indication: INSOMNIA
     Route: 048
  16. FUROSEMIDE [Concomitant]
     Indication: OEDEMA
     Route: 048

REACTIONS (3)
  - HAEMATEMESIS [None]
  - OESOPHAGEAL ULCER [None]
  - REFLUX OESOPHAGITIS [None]
